FAERS Safety Report 4819592-3 (Version None)
Quarter: 2005Q4

REPORT INFORMATION
  Report Type: 
  Country: None (occurrence: None)
  Receive Date: 20051103
  Receipt Date: 20051019
  Transmission Date: 20060501
  Serious: Yes (Other)
  Sender: FDA-Public Use
  Company Number: ESWYE074120OCT05

PATIENT
  Age: 11 Year
  Sex: Female
  Weight: 31 kg

DRUGS (1)
  1. ENBREL [Suspect]
     Indication: JUVENILE ARTHRITIS
     Route: 058
     Dates: start: 20001020, end: 20020501

REACTIONS (1)
  - UVEITIS [None]
